FAERS Safety Report 5865333-0 (Version None)
Quarter: 2008Q3

REPORT INFORMATION
  Report Type: 
  Country: None (occurrence: None)
  Receive Date: 20080829
  Receipt Date: 20080819
  Transmission Date: 20090109
  Serious: Yes (Other)
  Sender: FDA-Public Use
  Company Number: US-MERCK-0808USA03247

PATIENT
  Age: 78 Year
  Sex: Female

DRUGS (12)
  1. FOSAMAX [Suspect]
     Route: 048
  2. DIOVAN [Concomitant]
     Route: 065
  3. HYDROCHLOROTHIAZIDE [Concomitant]
     Route: 065
  4. PLAVIX [Concomitant]
     Route: 065
  5. VYTORIN [Concomitant]
     Route: 065
  6. ASPIRIN [Concomitant]
     Route: 065
  7. SERAX [Concomitant]
     Route: 065
  8. CALCIUM (UNSPECIFIED) [Concomitant]
     Route: 065
  9. BISOPROLOL [Concomitant]
     Route: 065
  10. ACTONEL [Suspect]
     Route: 065
  11. BONIVA [Suspect]
     Route: 065
  12. AMLODIPINE BESYLATE [Concomitant]
     Route: 065

REACTIONS (4)
  - CARDIAC FAILURE CONGESTIVE [None]
  - CHEST DISCOMFORT [None]
  - MUSCLE SPASMS [None]
  - MYOCARDIAL INFARCTION [None]
